FAERS Safety Report 7549183-5 (Version None)
Quarter: 2011Q2

REPORT INFORMATION
  Report Type: 
  Country: None (occurrence: None)
  Receive Date: 20110615
  Receipt Date: 20110602
  Transmission Date: 20111010
  Serious: Yes (Other)
  Sender: FDA-Public Use
  Company Number: PHHY2011BR49099

PATIENT
  Sex: Male

DRUGS (2)
  1. ASPIRIN [Suspect]
     Dosage: UNK
     Dates: start: 20110519
  2. CATAFLAM [Suspect]
     Indication: HEADACHE
     Dosage: 1 DF, Q8H
     Route: 048
     Dates: start: 20110519

REACTIONS (2)
  - OROPHARYNGEAL PAIN [None]
  - DIARRHOEA HAEMORRHAGIC [None]
